FAERS Safety Report 9629382 (Version 1)
Quarter: 2013Q4

REPORT INFORMATION
  Report Type: Spontaneous
  Country: US (occurrence: US)
  Receive Date: 20131017
  Receipt Date: 20131017
  Transmission Date: 20140711
  Serious: No
  Sender: FDA-Public Use
  Company Number: US-ASTRAZENECA-2013SE48734

PATIENT
  Sex: Female

DRUGS (4)
  1. CRESTOR [Suspect]
     Indication: LIPIDS
     Route: 048
  2. CRESTOR [Suspect]
     Indication: LIPIDS
     Route: 048
  3. METOPROLOL [Suspect]
     Dosage: GENERIC
     Route: 048
  4. UNSPECIFIED [Concomitant]
     Indication: MENTAL DISORDER

REACTIONS (2)
  - Muscle spasms [Unknown]
  - Pain [Unknown]
